APPROVED DRUG PRODUCT: EVAMIST
Active Ingredient: ESTRADIOL
Strength: 1.53MG/SPRAY
Dosage Form/Route: SPRAY;TRANSDERMAL
Application: N022014 | Product #001
Applicant: PADAGIS US LLC
Approved: Jul 27, 2007 | RLD: Yes | RS: Yes | Type: RX